FAERS Safety Report 20949832 (Version 1)
Quarter: 2022Q2

REPORT INFORMATION
  Report Type: Spontaneous
  Country: CN (occurrence: CN)
  Receive Date: 20220613
  Receipt Date: 20220613
  Transmission Date: 20220721
  Serious: Yes (Other)
  Sender: FDA-Public Use
  Company Number: CN-BoehringerIngelheim-2022-BI-174386

PATIENT
  Age: 64 Year
  Sex: Female
  Weight: 60 kg

DRUGS (1)
  1. ALTEPLASE [Suspect]
     Active Substance: ALTEPLASE
     Indication: Thrombolysis
     Route: 042
     Dates: start: 20220523, end: 20220523

REACTIONS (5)
  - Cerebral haemorrhage [Recovering/Resolving]
  - Coma [Recovering/Resolving]
  - Mouth haemorrhage [Recovering/Resolving]
  - Cerebral ventricle dilatation [Recovering/Resolving]
  - Hydrocephalus [Recovering/Resolving]

NARRATIVE: CASE EVENT DATE: 20220523
